FAERS Safety Report 12391051 (Version 3)
Quarter: 2017Q2

REPORT INFORMATION
  Report Type: Report from Study
  Country: ES (occurrence: ES)
  Receive Date: 20160520
  Receipt Date: 20170403
  Transmission Date: 20170830
  Serious: Yes (Death, Hospitalization, Other)
  Sender: FDA-Public Use
  Company Number: DE-ACTELION-A-US2016-136596

PATIENT
  Age: 36 Year
  Sex: Female

DRUGS (8)
  1. VENTAVIS [Suspect]
     Active Substance: ILOPROST
     Indication: PULMONARY ARTERIAL HYPERTENSION
     Dosage: 5 MCG, Q4HRS
     Route: 055
  2. WARFARIN [Concomitant]
     Active Substance: WARFARIN
     Indication: PULMONARY EMBOLISM
  3. AMLODIPINE [Concomitant]
     Active Substance: AMLODIPINE BESYLATE
  4. BLOKIUM [Concomitant]
  5. SEGURIL [Concomitant]
     Active Substance: FUROSEMIDE
  6. VENTAVIS [Suspect]
     Active Substance: ILOPROST
     Dosage: 2.5 MCG, Q8HR
     Route: 055
     Dates: start: 201307
  7. DEPAKINE [Concomitant]
     Active Substance: VALPROATE SODIUM
  8. PANTOPRAZOLE [Concomitant]
     Active Substance: PANTOPRAZOLE

REACTIONS (11)
  - Vomiting [Unknown]
  - Cardiac failure [Unknown]
  - Oliguria [Unknown]
  - Influenza [Unknown]
  - Respiratory tract infection [Unknown]
  - Respiratory failure [Unknown]
  - Multiple organ dysfunction syndrome [Fatal]
  - Product use issue [Unknown]
  - Hypotension [Unknown]
  - Pyrexia [Unknown]
  - Skin ulcer [Unknown]

NARRATIVE: CASE EVENT DATE: 20140321
